FAERS Safety Report 11876302 (Version 2)
Quarter: 2016Q1

REPORT INFORMATION
  Report Type: Spontaneous
  Country: CN (occurrence: CN)
  Receive Date: 20151229
  Receipt Date: 20160111
  Transmission Date: 20160526
  Serious: Yes (Hospitalization)
  Sender: FDA-Public Use
  Company Number: CN-BAUSCH-BL-2015-030612

PATIENT
  Age: 34 Year
  Sex: Male

DRUGS (1)
  1. VISUDYNE [Suspect]
     Active Substance: VERTEPORFIN
     Indication: CHORIORETINOPATHY
     Route: 042
     Dates: start: 20151214

REACTIONS (6)
  - Discomfort [Recovering/Resolving]
  - Blood pressure fluctuation [Recovering/Resolving]
  - Loss of consciousness [Recovered/Resolved]
  - Pallor [Recovering/Resolving]
  - Dizziness [Recovering/Resolving]
  - Urinary incontinence [Recovering/Resolving]

NARRATIVE: CASE EVENT DATE: 20151214
